FAERS Safety Report 5644724-7 (Version None)
Quarter: 2008Q1

REPORT INFORMATION
  Report Type: 
  Country: None (occurrence: None)
  Receive Date: 20080227
  Receipt Date: 20080211
  Transmission Date: 20080703
  Serious: Yes (Other)
  Sender: FDA-Public Use
  Company Number: TRP_01066_2008

PATIENT
  Sex: Female

DRUGS (2)
  1. RIBAVIRIN [Suspect]
     Indication: HEPATITIS C VIRUS
     Dosage: 1000 MG ORAL
     Route: 048
     Dates: start: 20071003
  2. PEGASYS [Suspect]
     Indication: HEPATITIS C VIRUS
     Dosage: 180 UG SUBCUTANEOUS
     Route: 058
     Dates: start: 20071003

REACTIONS (9)
  - ALOPECIA [None]
  - CHEST PAIN [None]
  - COUGH [None]
  - HAEMOGLOBIN DECREASED [None]
  - PLEURAL EFFUSION [None]
  - PLEURAL RUB [None]
  - RED BLOOD CELL COUNT DECREASED [None]
  - VIRAL LOAD DECREASED [None]
  - WHITE BLOOD CELL COUNT DECREASED [None]
